FAERS Safety Report 5988769-6 (Version None)
Quarter: 2008Q4

REPORT INFORMATION
  Report Type: 
  Country: None (occurrence: None)
  Receive Date: 20081210
  Receipt Date: 20081208
  Transmission Date: 20090506
  Serious: Yes (Hospitalization)
  Sender: FDA-Public Use
  Company Number: PHBS2008US06500

PATIENT
  Age: 48 Year
  Sex: Female

DRUGS (3)
  1. CYCLOSPORINE [Suspect]
     Indication: RENAL TRANSPLANT
     Dosage: UNK
     Dates: start: 19960101
  2. CELLCEPT [Concomitant]
     Indication: RENAL TRANSPLANT
     Dosage: UNK
     Dates: start: 19960101
  3. PREDNISONE TAB [Concomitant]
     Indication: RENAL TRANSPLANT
     Dosage: UNK
     Dates: start: 19960101

REACTIONS (5)
  - DISEASE RECURRENCE [None]
  - FIBRILLARY GLOMERULONEPHRITIS [None]
  - HAEMODIALYSIS [None]
  - RENAL FAILURE [None]
  - RENAL TRANSPLANT [None]
